FAERS Safety Report 9696221 (Version 4)
Quarter: 2014Q1

REPORT INFORMATION
  Report Type: Spontaneous
  Country: JP (occurrence: JP)
  Receive Date: 20131119
  Receipt Date: 20140131
  Transmission Date: 20141002
  Serious: Yes (Hospitalization)
  Sender: FDA-Public Use
  Company Number: PHHY2013JP131908

PATIENT
  Age: 87 Year
  Sex: Female

DRUGS (8)
  1. EXELON PATCH [Suspect]
     Indication: DEMENTIA ALZHEIMER^S TYPE
     Dosage: 4.5 MG, DAILY
     Route: 062
     Dates: start: 20120529, end: 20120723
  2. EXELON PATCH [Suspect]
     Dosage: 9 MG, DAILY
     Route: 062
     Dates: start: 20120724, end: 20120917
  3. EXELON PATCH [Suspect]
     Dosage: 13.5 MG, DAILY
     Route: 062
     Dates: start: 20120918, end: 20131112
  4. EXELON PATCH [Suspect]
     Dosage: 126 MG, (7 EXELON 18 MG PATCHES WERE APPLIED TO THE PATIENT)
     Route: 062
     Dates: start: 20131113, end: 20131113
  5. EXELON PATCH [Suspect]
     Dosage: 13.5 MG, DAILY
     Route: 062
     Dates: start: 20131114
  6. LACTEC                             /00490001/ [Concomitant]
     Dosage: 500 ML, UNK
     Dates: start: 20131114, end: 20131115
  7. PRIMPERAN [Concomitant]
     Dosage: 10 ML, UNK
     Dates: start: 20131114
  8. MEMARY [Concomitant]
     Dosage: 1 DF, UNK(10 MG)
     Route: 062
     Dates: start: 20131114

REACTIONS (7)
  - Oxygen saturation decreased [Recovered/Resolved]
  - Aphagia [Recovered/Resolved]
  - Body temperature increased [Recovered/Resolved]
  - Vomiting [Recovered/Resolved]
  - Somnolence [Recovered/Resolved]
  - Overdose [Recovered/Resolved]
  - Drug administration error [Recovered/Resolved]
